FAERS Safety Report 6861431-3 (Version None)
Quarter: 2010Q3

REPORT INFORMATION
  Report Type: 
  Country: None (occurrence: None)
  Receive Date: 20100715
  Receipt Date: 20100701
  Transmission Date: 20110219
  Serious: Yes (Hospitalization)
  Sender: FDA-Public Use
  Company Number: 012255

PATIENT
  Sex: Female

DRUGS (20)
  1. CERTOLIZUMAB PEGOL (CERTOLIZUMAB PEGOL) [Suspect]
     Indication: RHEUMATOID ARTHRITIS
     Dosage: (200 MG  1X/2 WEEKS SUBCUTANEOUS)
     Route: 058
     Dates: start: 20100408
  2. PREDNISOLONE [Concomitant]
  3. DICLOFENAC SODIUM [Concomitant]
  4. LORFENAMIN [Concomitant]
  5. ISONIAZID [Concomitant]
  6. OMEPRAL /00661201/ [Concomitant]
  7. DIFENIDOL HYDROCHLORIDE [Concomitant]
  8. MERCAZOLE [Concomitant]
  9. DIOVAN /01319601/ [Concomitant]
  10. LUVOX [Concomitant]
  11. MEDIPEACE [Concomitant]
  12. AMLODIPINE BESYLATE [Concomitant]
  13. MEVAN /00880402/ [Concomitant]
  14. MYSLEE [Concomitant]
  15. MUCOSTA [Concomitant]
  16. ABILIFY [Concomitant]
  17. ALOSENN /00476901/ [Concomitant]
  18. LEVOFLOXACIN [Concomitant]
  19. SODIUM PICOSULFATE [Concomitant]
  20. KETOCONOZOLE [Concomitant]

REACTIONS (16)
  - ACTIVITIES OF DAILY LIVING IMPAIRED [None]
  - ARTHRALGIA [None]
  - BLOOD PRESSURE SYSTOLIC INCREASED [None]
  - BODY TEMPERATURE INCREASED [None]
  - BRAIN STEM HAEMORRHAGE [None]
  - CONSTIPATION [None]
  - CYSTITIS [None]
  - GAIT DISTURBANCE [None]
  - HEART RATE INCREASED [None]
  - MENISCUS LESION [None]
  - MUSCULAR WEAKNESS [None]
  - PNEUMONIA [None]
  - SNORING [None]
  - STAPHYLOCOCCAL INFECTION [None]
  - TINEA INFECTION [None]
  - UNRESPONSIVE TO STIMULI [None]
